FAERS Safety Report 11769977 (Version 1)
Quarter: 2015Q4

REPORT INFORMATION
  Report Type: Spontaneous
  Country: BR (occurrence: BR)
  Receive Date: 20151123
  Receipt Date: 20151123
  Transmission Date: 20160304
  Serious: Yes (Other)
  Sender: FDA-Public Use
  Company Number: BR-BAYER-2015-465921

PATIENT
  Age: 35 Year
  Sex: Female
  Weight: 58.96 kg

DRUGS (1)
  1. ASPIRINA [Suspect]
     Active Substance: ASPIRIN
     Dosage: 200 MG, QD
     Route: 048

REACTIONS (2)
  - Patent ductus arteriosus [None]
  - CSF shunt operation [None]
